FAERS Safety Report 5161012-6 (Version None)
Quarter: 2006Q4

REPORT INFORMATION
  Report Type: 
  Country: None (occurrence: None)
  Receive Date: 20061121
  Receipt Date: 20061110
  Transmission Date: 20070319
  Serious: Yes (Hospitalization, Other)
  Sender: FDA-Public Use
  Company Number: 2006132807

PATIENT
  Age: 20 Year
  Sex: Female
  Weight: 41 kg

DRUGS (6)
  1. ZOLOFT [Suspect]
     Indication: DEPRESSION
     Dosage: ORAL
     Route: 048
     Dates: end: 20061029
  2. PALGIN (AMINOPHENAZONE, CAFFEINE, GUARANA, PHENACETIN, PHENAZONE) [Suspect]
     Dosage: ORAL
     Route: 048
     Dates: start: 20061029, end: 20061029
  3. DIAZEPAM [Suspect]
     Dosage: ORAL
     Route: 048
     Dates: start: 20061029, end: 20061029
  4. AMITRIPTYLINE HCL [Suspect]
     Dosage: ORAL
     Route: 048
     Dates: start: 20061029, end: 20061029
  5. ETHYL LOFLAZEPATE (ETHYL LOFLAZEPATE) [Suspect]
     Dosage: ORAL
     Route: 048
     Dates: start: 20061029, end: 20061029
  6. FUROSEMIDE [Suspect]
     Indication: DEPRESSED LEVEL OF CONSCIOUSNESS
     Dosage: 10 MG
     Dates: start: 20061030, end: 20061031

REACTIONS (3)
  - DEPRESSED LEVEL OF CONSCIOUSNESS [None]
  - MULTIPLE DRUG OVERDOSE [None]
  - POLYURIA [None]
